FAERS Safety Report 21997874 (Version 2)
Quarter: 2023Q2

REPORT INFORMATION
  Report Type: Spontaneous
  Country: US (occurrence: US)
  Receive Date: 20230216
  Receipt Date: 20230516
  Transmission Date: 20230721
  Serious: Yes (Disabling)
  Sender: FDA-Public Use
  Company Number: US-SA-SAC20230215000075

PATIENT
  Age: 56 Year
  Sex: Female

DRUGS (2)
  1. KEVZARA [Suspect]
     Active Substance: SARILUMAB
     Indication: Rheumatoid arthritis
     Dosage: 200 MG, QOW
     Route: 058
     Dates: start: 202210
  2. PROLIA [Suspect]
     Active Substance: DENOSUMAB
     Dosage: UNK
     Route: 065

REACTIONS (6)
  - Loss of personal independence in daily activities [Unknown]
  - Pain [Unknown]
  - Malaise [Unknown]
  - Gait inability [Unknown]
  - Migraine [Unknown]
  - Headache [Unknown]

NARRATIVE: CASE EVENT DATE: 20230501
